FAERS Safety Report 17647042 (Version 1)
Quarter: 2020Q2

REPORT INFORMATION
  Report Type: Spontaneous
  Country: CA (occurrence: CA)
  Receive Date: 20200409
  Receipt Date: 20200409
  Transmission Date: 20200713
  Serious: Yes (Death)
  Sender: FDA-Public Use
  Company Number: CA-TEVA-2020-CA-1219634

PATIENT
  Age: 47 Year
  Sex: Female
  Weight: 88 kg

DRUGS (10)
  1. RABEPRAZOLE [Concomitant]
     Active Substance: RABEPRAZOLE
  2. GABAPENTIN. [Suspect]
     Active Substance: GABAPENTIN
     Indication: PRODUCT USED FOR UNKNOWN INDICATION
     Route: 065
  3. CLONIDINE. [Concomitant]
     Active Substance: CLONIDINE
  4. LOSARTAN. [Concomitant]
     Active Substance: LOSARTAN
  5. FENTANYL. [Suspect]
     Active Substance: FENTANYL
     Indication: PRODUCT USED FOR UNKNOWN INDICATION
     Route: 065
  6. DULOXETINE. [Concomitant]
     Active Substance: DULOXETINE
  7. TIZANIDINE. [Concomitant]
     Active Substance: TIZANIDINE
  8. ZOLMITRIPTAN. [Concomitant]
     Active Substance: ZOLMITRIPTAN
  9. IBUPROFEN. [Concomitant]
     Active Substance: IBUPROFEN
  10. TRAZODONE [Suspect]
     Active Substance: TRAZODONE HYDROCHLORIDE
     Indication: PRODUCT USED FOR UNKNOWN INDICATION
     Route: 065

REACTIONS (1)
  - Toxicity to various agents [Fatal]
